FAERS Safety Report 9642900 (Version 3)
Quarter: 2014Q1

REPORT INFORMATION
  Report Type: Report from Study
  Country: US (occurrence: US)
  Receive Date: 20131024
  Receipt Date: 20140106
  Transmission Date: 20141002
  Serious: Yes (Death, Other)
  Sender: FDA-Public Use
  Company Number: PHEH2013US022229

PATIENT
  Age: 71 Year
  Sex: Male

DRUGS (2)
  1. TOBI [Suspect]
     Indication: BRONCHIECTASIS
     Dosage: 1 DF, BID
     Route: 055
     Dates: start: 20130225, end: 20130822
  2. TOBI [Suspect]
     Indication: PNEUMONIA PSEUDOMONAL

REACTIONS (2)
  - Death [Fatal]
  - Respiratory failure [Unknown]
